FAERS Safety Report 17575040 (Version 1)
Quarter: 2020Q1

REPORT INFORMATION
  Report Type: Spontaneous
  Country: US (occurrence: US)
  Receive Date: 20200317
  Receipt Date: 20200317
  Transmission Date: 20200409
  Serious: Yes (Other)
  Sender: FDA-Public Use
  Company Number: None

PATIENT
  Age: 68 Year
  Sex: Female
  Weight: 81.19 kg

DRUGS (13)
  1. VITAMIN C [Concomitant]
     Active Substance: ASCORBIC ACID
  2. CYMBALTA [Concomitant]
     Active Substance: DULOXETINE HYDROCHLORIDE
  3. MULTIVITAMIN [Concomitant]
     Active Substance: VITAMINS
  4. OPIUM TINCTURE [Concomitant]
     Active Substance: MORPHINE
  5. VIT B [Concomitant]
     Active Substance: VITAMIN B
  6. REVLIMID [Suspect]
     Active Substance: LENALIDOMIDE
     Indication: PLASMA CELL MYELOMA
     Route: 048
     Dates: start: 20080610, end: 20120605
  7. VIT D [Concomitant]
     Active Substance: VITAMIN D NOS
  8. SIMVASATIN [Concomitant]
  9. CALCIUM [Concomitant]
     Active Substance: CALCIUM
  10. NAAOLOL [Concomitant]
  11. JANUMET [Concomitant]
     Active Substance: METFORMIN HYDROCHLORIDE\SITAGLIPTIN PHOSPHATE
  12. LOSARTAN. [Concomitant]
     Active Substance: LOSARTAN
  13. ASA 81 [Concomitant]
     Active Substance: ASPIRIN

REACTIONS (1)
  - Diarrhoea [None]

NARRATIVE: CASE EVENT DATE: 20080610
